FAERS Safety Report 9053848 (Version 4)
Quarter: 2013Q1

REPORT INFORMATION
  Report Type: Report from Study
  Country: NL (occurrence: NL)
  Receive Date: 20130207
  Receipt Date: 20130325
  Transmission Date: 20140127
  Serious: Yes (Hospitalization)
  Sender: FDA-Public Use
  Company Number: NL-GLAXOSMITHKLINE-B0865587A

PATIENT
  Age: 72 None
  Sex: Male

DRUGS (6)
  1. PAZOPANIB [Suspect]
     Indication: METASTATIC RENAL CELL CARCINOMA
     Dosage: 800MGK PER DAY
     Route: 048
     Dates: start: 20121122
  2. EVEROLIMUS [Suspect]
     Indication: METASTATIC RENAL CELL CARCINOMA
     Dosage: 5MGK PER DAY
     Route: 048
     Dates: start: 20130118
  3. PANTOZOL [Concomitant]
     Dates: start: 20100730
  4. METOCLOPRAMIDE [Concomitant]
     Dosage: 10MG AS REQUIRED
     Dates: start: 20121109
  5. PARACETAMOL [Concomitant]
     Dosage: 1000MG AS REQUIRED
     Dates: start: 20130117
  6. TRAMADOL [Concomitant]

REACTIONS (2)
  - Hypercalcaemia [Recovered/Resolved]
  - Hypercalcaemia [Recovered/Resolved]
